FAERS Safety Report 13084793 (Version 2)
Quarter: 2017Q1

REPORT INFORMATION
  Report Type: Spontaneous
  Country: CH (occurrence: CH)
  Receive Date: 20170104
  Receipt Date: 20170111
  Transmission Date: 20170428
  Serious: Yes (Hospitalization)
  Sender: FDA-Public Use
  Company Number: CH-PFIZER INC-2016600427

PATIENT
  Age: 82 Year
  Sex: Male
  Weight: 83 kg

DRUGS (10)
  1. DILATREND [Suspect]
     Active Substance: CARVEDILOL
     Dosage: 6.25 MG, 2X/DAY
     Route: 048
  2. ENALAPRIL-MEPHA [Suspect]
     Active Substance: ENALAPRIL
     Dosage: 5 MG, 2X/DAY
     Route: 048
  3. DIGOXIN SANDOZ [Concomitant]
     Active Substance: DIGOXIN
     Dosage: 0.125 MG, 1X/DAY
     Route: 048
  4. LESCOL [Concomitant]
     Active Substance: FLUVASTATIN SODIUM
     Dosage: 80 MG, 1X/DAY
     Route: 048
  5. ELIQUIS [Concomitant]
     Active Substance: APIXABAN
     Dosage: 2.5 MG, 2X/DAY
     Route: 048
  6. ZOLPIDEM STREULI [Concomitant]
     Active Substance: ZOLPIDEM TARTRATE
     Dosage: 10 MG, 1X/DAY
     Route: 048
  7. TORASEMID SANDOZ ECO [Suspect]
     Active Substance: TORSEMIDE
     Dosage: 5 MG, 1X/DAY
     Route: 048
     Dates: end: 20160927
  8. CORDARONE [Concomitant]
     Active Substance: AMIODARONE HYDROCHLORIDE
     Dosage: 200 MG, 1X/DAY
     Route: 048
  9. ALDACTONE [Suspect]
     Active Substance: SPIRONOLACTONE
     Dosage: 25 MG, 1X/DAY
     Route: 048
  10. BACTRIM [Suspect]
     Active Substance: SULFAMETHOXAZOLE\TRIMETHOPRIM
     Indication: URINARY TRACT INFECTION
     Dosage: 1 DF (800/160 MG), 2X/DAY
     Route: 048
     Dates: start: 20160921, end: 20160927

REACTIONS (4)
  - Asthenia [Recovered/Resolved]
  - Acute kidney injury [Recovering/Resolving]
  - Hyperkalaemia [Recovered/Resolved]
  - Dizziness [Recovered/Resolved]

NARRATIVE: CASE EVENT DATE: 20160927
